FAERS Safety Report 26202267 (Version 1)
Quarter: 2025Q4

REPORT INFORMATION
  Report Type: Report from Study
  Country: EU (occurrence: EU)
  Receive Date: 20251226
  Receipt Date: 20251226
  Transmission Date: 20260117
  Serious: Yes (Death, Hospitalization, Other)
  Sender: BRISTOL-MYERS SQUIBB COMPANY
  Company Number: EU-ABBVIE-5499045

PATIENT
  Age: 81 Year
  Sex: Male
  Weight: 78 kg

DRUGS (110)
  1. AZACITIDINE [Suspect]
     Active Substance: AZACITIDINE
     Indication: Chronic lymphocytic leukaemia
     Dosage: STANDARD DOSING
     Route: 042
     Dates: start: 20231228, end: 20231229
  2. AZACITIDINE [Suspect]
     Active Substance: AZACITIDINE
     Dosage: STANDARD DOSING
     Route: 042
     Dates: start: 20240226, end: 20240228
  3. AZACITIDINE [Suspect]
     Active Substance: AZACITIDINE
     Dosage: STANDARD DOSING
     Route: 042
     Dates: start: 20231127, end: 20231201
  4. AZACITIDINE [Suspect]
     Active Substance: AZACITIDINE
     Dosage: STANDARD DOSING
     Route: 042
     Dates: start: 20240222, end: 20240223
  5. AZACITIDINE [Suspect]
     Active Substance: AZACITIDINE
     Dosage: STANDARD DOSING
     Route: 042
     Dates: start: 20240129, end: 20240131
  6. AZACITIDINE [Suspect]
     Active Substance: AZACITIDINE
     Route: 042
     Dates: start: 20240125, end: 20240126
  7. AZACITIDINE [Suspect]
     Active Substance: AZACITIDINE
     Dosage: FREQUENCY TEXT: STANDARD DOSING
     Route: 042
     Dates: start: 20240325, end: 20240327
  8. AZACITIDINE [Suspect]
     Active Substance: AZACITIDINE
     Route: 042
     Dates: start: 20240321, end: 20240322
  9. AZACITIDINE [Suspect]
     Active Substance: AZACITIDINE
     Dosage: STANDARD DOSE
     Route: 042
     Dates: start: 20240101, end: 20240103
  10. AZACITIDINE [Suspect]
     Active Substance: AZACITIDINE
     Dosage: FREQUENCY TEXT: STANDARD DOSING
     Route: 042
     Dates: start: 20240422, end: 20240424
  11. AZACITIDINE [Suspect]
     Active Substance: AZACITIDINE
     Dosage: FREQUENCY TEXT: STANDARD DOSING
     Route: 042
     Dates: start: 20240418, end: 20240419
  12. AZACITIDINE [Suspect]
     Active Substance: AZACITIDINE
     Dosage: STANDARD DOSING
     Route: 042
     Dates: start: 20231020, end: 20231024
  13. AZACITIDINE [Suspect]
     Active Substance: AZACITIDINE
     Dosage: FREQUENCY TEXT: STANDARD DOSING
     Route: 042
     Dates: start: 20240624, end: 20240628
  14. AZACITIDINE [Suspect]
     Active Substance: AZACITIDINE
     Dosage: STANDARD DOSING
     Route: 042
     Dates: start: 20230907, end: 20230913
  15. AZACITIDINE [Suspect]
     Active Substance: AZACITIDINE
     Dosage: FREQUENCY TEXT: STANDARD DOSING
     Route: 042
     Dates: start: 20240527, end: 20240529
  16. AZACITIDINE [Suspect]
     Active Substance: AZACITIDINE
     Dosage: FREQUENCY TEXT: STANDARD DOSING
     Route: 042
     Dates: start: 20240523, end: 20240524
  17. AZACITIDINE [Suspect]
     Active Substance: AZACITIDINE
     Dosage: 143.95 MG?FREQUENCY TEXT: STANDARD DOSING
     Route: 042
     Dates: start: 20240722, end: 20240726
  18. VENETOCLAX [Suspect]
     Active Substance: VENETOCLAX
     Indication: Acute myeloid leukaemia
     Dosage: FREQUENCY TEXT: OTHER
     Route: 048
     Dates: start: 20231228, end: 20240124
  19. VENETOCLAX [Suspect]
     Active Substance: VENETOCLAX
     Indication: Chronic lymphocytic leukaemia
     Dosage: FREQUENCY TEXT: HEMATOLOGICAL AE / SAE VENETOCLAX 0MG
     Route: 048
     Dates: start: 20231127, end: 20231224
  20. VENETOCLAX [Suspect]
     Active Substance: VENETOCLAX
     Dosage: FREQUENCY TEXT: RAMP-UP DOSE, HEMATOLOGICAL AE / SAE
     Route: 048
     Dates: start: 20240222, end: 20240320
  21. VENETOCLAX [Suspect]
     Active Substance: VENETOCLAX
     Dosage: FREQUENCY TEXT: OTHER, HEMATOLOGICAL AE / SAE
     Route: 048
     Dates: start: 20240321, end: 20240417
  22. VENETOCLAX [Suspect]
     Active Substance: VENETOCLAX
     Dosage: FREQUENCY TEXT: HEMATOLOGIC AE / SAE, TITRATION
     Route: 048
     Dates: start: 20230909, end: 20230909
  23. VENETOCLAX [Suspect]
     Active Substance: VENETOCLAX
     Dosage: FREQUENCY TEXT: OTHER, HEMATOLOGICAL AE / SAE
     Route: 048
     Dates: start: 20240125, end: 20240221
  24. VENETOCLAX [Suspect]
     Active Substance: VENETOCLAX
     Dosage: FREQUENCY TEXT: OTHER, TITRATION
     Route: 048
     Dates: start: 20230907, end: 20230907
  25. VENETOCLAX [Suspect]
     Active Substance: VENETOCLAX
     Dosage: 0 MG, FREQUENCY TEXT: HEMATOLOGIC AE / SAE
     Route: 048
     Dates: start: 20240516, end: 20240522
  26. VENETOCLAX [Suspect]
     Active Substance: VENETOCLAX
     Dosage: FREQUENCY TEXT: OTHER, STANDARD ADMINISTRATION
     Route: 048
     Dates: start: 20230910, end: 20230926
  27. VENETOCLAX [Suspect]
     Active Substance: VENETOCLAX
     Dosage: 0 MG, FREQUENCY TEXT: HEMATOLOGIC AE / SAE
     Route: 048
     Dates: start: 20240620, end: 20240623
  28. VENETOCLAX [Suspect]
     Active Substance: VENETOCLAX
     Dosage: FREQUENCY TEXT: OTHER
     Route: 048
     Dates: start: 20240624, end: 20240707
  29. VENETOCLAX [Suspect]
     Active Substance: VENETOCLAX
     Dosage: FREQUENCY TEXT: HEMATOLOGIC AE / SAE, TITRATION
     Route: 048
     Dates: start: 20230908, end: 20230908
  30. VENETOCLAX [Suspect]
     Active Substance: VENETOCLAX
     Dosage: 0 MG FREQUENCY TEXT: HEMATOLOGIC AE / SAE
     Route: 048
     Dates: start: 20230927, end: 20231019
  31. VENETOCLAX [Suspect]
     Active Substance: VENETOCLAX
     Dosage: FREQUENCY TEXT: OTHER
     Route: 048
     Dates: start: 20231020, end: 20231116
  32. VENETOCLAX [Suspect]
     Active Substance: VENETOCLAX
     Dosage: FREQUENCY TEXT: HEMATOLOGIC AE/SAE
     Route: 048
     Dates: start: 20240418, end: 20240515
  33. VENETOCLAX [Suspect]
     Active Substance: VENETOCLAX
     Dosage: FREQUENCY TEXT: RAMP-UP DOSE, HEMATOLOGICAL AE / SAE
     Route: 048
     Dates: start: 20240523, end: 20240605
  34. VENETOCLAX [Suspect]
     Active Substance: VENETOCLAX
     Dosage: 0 MG, FREQUENCY TEXT: RAMP-UP DOSE
     Route: 048
     Dates: start: 20240606, end: 20240619
  35. VENETOCLAX [Suspect]
     Active Substance: VENETOCLAX
     Dosage: 0 MILLIGRAM?FREQUENCY TEXT: OTHER
     Route: 048
     Dates: start: 20240708, end: 20240721
  36. VENETOCLAX [Suspect]
     Active Substance: VENETOCLAX
     Dosage: 0 MG?HEMATOLOGICAL AE / SAE
     Route: 048
     Dates: start: 20240722, end: 20240726
  37. VENETOCLAX [Suspect]
     Active Substance: VENETOCLAX
     Dosage: 0 MG FREQUENCY TEXT: HEMATOLOGICAL AE / SAE VENETOCLAX
     Route: 048
     Dates: start: 20231120, end: 20231126
  38. VENETOCLAX [Suspect]
     Active Substance: VENETOCLAX
     Dosage: 0 MG FREQUENCY TEXT: OTHER
     Route: 048
     Dates: start: 20231225, end: 20231227
  39. VENETOCLAX [Suspect]
     Active Substance: VENETOCLAX
     Dosage: 0 MG
     Route: 048
     Dates: start: 20231117, end: 20231119
  40. VENETOCLAX [Suspect]
     Active Substance: VENETOCLAX
     Dosage: 0 MG?FREQUENCY TEXT: OTHER
     Route: 048
     Dates: start: 20240805, end: 20240818
  41. ANDOFIN [Concomitant]
     Indication: Product used for unknown indication
     Route: 048
     Dates: start: 20240914, end: 20240915
  42. TAMSULOSIN HYDROCHLORIDE [Concomitant]
     Active Substance: TAMSULOSIN HYDROCHLORIDE
     Indication: Benign prostatic hyperplasia
     Route: 048
     Dates: end: 20240915
  43. TAMSULOSIN HYDROCHLORIDE [Concomitant]
     Active Substance: TAMSULOSIN HYDROCHLORIDE
     Indication: Cardiovascular disorder
  44. G CSFPCGEN [Concomitant]
     Indication: Supportive care
     Dates: start: 20240913, end: 20240914
  45. G CSFPCGEN [Concomitant]
     Indication: Neutropenia
     Dates: start: 20240910, end: 20240912
  46. G CSFPCGEN [Concomitant]
     Indication: Blood test abnormal
     Dates: start: 20240813, end: 20240907
  47. G CSFPCGEN [Concomitant]
     Dates: start: 20231128, end: 20240812
  48. G CSFPCGEN [Concomitant]
     Dates: start: 20240908, end: 20240908
  49. AMOXICILLIN\CLAVULANATE POTASSIUM [Concomitant]
     Active Substance: AMOXICILLIN\CLAVULANATE POTASSIUM
     Indication: Antibiotic therapy
     Dosage: 875/125MG
     Route: 048
     Dates: start: 20231003
  50. AUGMENTIN [Concomitant]
     Active Substance: AMOXICILLIN\CLAVULANATE POTASSIUM
     Indication: Antibiotic therapy
     Dosage: 875/125MG
     Route: 048
     Dates: start: 20230914, end: 20230927
  51. ELOMEL [Concomitant]
     Indication: Product used for unknown indication
     Route: 042
     Dates: start: 20240907, end: 20240907
  52. ELOMEL [Concomitant]
     Route: 042
     Dates: start: 20240908, end: 20240914
  53. LOVENOX [Concomitant]
     Active Substance: ENOXAPARIN SODIUM
     Indication: Thrombosis prophylaxis
     Route: 058
     Dates: start: 20230930, end: 20231002
  54. ESCITALOPRAM [Concomitant]
     Active Substance: ESCITALOPRAM OXALATE
     Indication: Depression
     Route: 048
     Dates: start: 20230904, end: 20240908
  55. ESCITALOPRAM [Concomitant]
     Active Substance: ESCITALOPRAM OXALATE
     Indication: Anxiety disorder
     Route: 048
     Dates: start: 20240909, end: 20240915
  56. PROSCAR [Concomitant]
     Active Substance: FINASTERIDE
     Indication: Benign prostatic hyperplasia
     Dosage: FREQUENCY TEXT: 3 TIMES PER WEEK (MON, WED, FRI)
     Route: 048
     Dates: start: 20230831, end: 20240913
  57. ONDANSETRON [Concomitant]
     Active Substance: ONDANSETRON
     Indication: Nausea
     Dates: start: 20230907, end: 20240915
  58. ONDANSETRON [Concomitant]
     Active Substance: ONDANSETRON
     Indication: Supportive care
     Route: 048
     Dates: start: 20240722, end: 20240726
  59. ONDANSETRON [Concomitant]
     Active Substance: ONDANSETRON
     Indication: Vomiting
  60. CHOLECALCIFEROL [Concomitant]
     Active Substance: CHOLECALCIFEROL
     Indication: Supportive care
     Dosage: FREQUENCY TEXT: WEEKLY (FRIDAYS)
     Route: 048
     Dates: start: 20230901, end: 20240913
  61. MYCOSTATIN [Concomitant]
     Active Substance: NYSTATIN
     Indication: Fungal infection
     Route: 048
     Dates: start: 20240907, end: 20240913
  62. MYCOSTATIN [Concomitant]
     Active Substance: NYSTATIN
     Route: 048
     Dates: start: 20230831, end: 20230926
  63. MYCOSTATIN [Concomitant]
     Active Substance: NYSTATIN
     Route: 048
     Dates: start: 20230928, end: 20231002
  64. ACETAMINOPHEN [Concomitant]
     Active Substance: ACETAMINOPHEN
     Indication: Pain management
     Route: 048
     Dates: start: 20230904, end: 20240915
  65. GINKGO [Concomitant]
     Active Substance: GINKGO
     Indication: Cognitive disorder
     Dosage: ONCE DAILY IN THE MORNING
     Route: 048
     Dates: end: 20240909
  66. GINKGO [Concomitant]
     Active Substance: GINKGO
     Indication: Cerebrovascular disorder
  67. BROMAZEPAM [Concomitant]
     Active Substance: BROMAZEPAM
     Indication: Anxiety disorder
     Dosage: FREQUENCY TEXT: IN THE EVENING
     Route: 048
     Dates: start: 20230830, end: 20240915
  68. BROMAZEPAM [Concomitant]
     Active Substance: BROMAZEPAM
     Indication: Sleep disorder
     Dosage: HALF IN THE EVENINGS
  69. BROMAZEPAM [Concomitant]
     Active Substance: BROMAZEPAM
     Dosage: FREQUENCY TEXT: IN CASE OF MASSIVE RESTLESSNESS
  70. DEXIBUPROFEN [Concomitant]
     Active Substance: DEXIBUPROFEN
     Indication: Analgesic therapy
     Route: 048
     Dates: start: 20230928
  71. Paspertin [Concomitant]
     Indication: Nausea
     Dosage: WITH NASUEA UP TO 3X DAILY
     Route: 042
     Dates: start: 20240913, end: 20240915
  72. Paspertin [Concomitant]
     Indication: Vomiting
     Route: 048
     Dates: start: 20230907, end: 20240912
  73. PERFALGAN [Concomitant]
     Active Substance: ACETAMINOPHEN
     Indication: Pyrexia
     Route: 042
     Dates: start: 20230909, end: 20230909
  74. PERFALGAN [Concomitant]
     Active Substance: ACETAMINOPHEN
     Indication: Analgesic therapy
     Route: 042
     Dates: start: 20240907, end: 20240907
  75. PANTOPRAZOLE SODIUM [Concomitant]
     Active Substance: PANTOPRAZOLE SODIUM
     Indication: Gastric ulcer
     Route: 048
     Dates: start: 20230911, end: 20240915
  76. PANTOPRAZOLE SODIUM [Concomitant]
     Active Substance: PANTOPRAZOLE SODIUM
     Indication: Gastrooesophageal reflux disease
  77. CANDESARTAN [Concomitant]
     Active Substance: CANDESARTAN
     Indication: Hypertension
     Dosage: ONCE DAILY (IN THE AFTERNOON)
     Route: 048
     Dates: end: 20240915
  78. CANDESARTAN [Concomitant]
     Active Substance: CANDESARTAN
     Indication: Cardiac failure
  79. Novalgin [Concomitant]
     Indication: Analgesic therapy
     Dosage: FREQUENCY TEXT: UP TO 3 TIMES A DAY IF PAIN,
     Route: 042
     Dates: start: 20230910, end: 20230910
  80. Novalgin [Concomitant]
     Route: 042
     Dates: start: 20240913, end: 20240915
  81. ALBUMIN TANNATE [Concomitant]
     Active Substance: ALBUMIN TANNATE
     Indication: Hypersensitivity
     Route: 048
     Dates: start: 20230909, end: 20240915
  82. TAZOBACTAM [Concomitant]
     Active Substance: TAZOBACTAM
     Indication: Infection
     Route: 042
     Dates: start: 20240907, end: 20240913
  83. TAZOBACTAM [Concomitant]
     Active Substance: TAZOBACTAM
     Route: 042
     Dates: start: 20230928, end: 20231002
  84. TAZOBACTAM [Concomitant]
     Active Substance: TAZOBACTAM
     Dosage: 1-1-1-0 DAILY, DAY 8 (14-SEP-2024)
     Route: 042
     Dates: start: 20240913, end: 20240914
  85. CEFTRIAXONE [Concomitant]
     Active Substance: CEFTRIAXONE
     Indication: Antibiotic therapy
     Route: 042
     Dates: start: 20230909, end: 20230909
  86. ENOXAPARIN SODIUM [Concomitant]
     Active Substance: ENOXAPARIN SODIUM
     Indication: Thrombosis prophylaxis
     Route: 058
     Dates: start: 20230831, end: 20230908
  87. ERYTHROPOIETIN [Concomitant]
     Active Substance: ERYTHROPOIETIN
     Indication: Product used for unknown indication
     Dates: start: 20240624, end: 20240913
  88. FILGRASTIM [Concomitant]
     Active Substance: FILGRASTIM
     Indication: Neutropenia
     Dosage: FREQUENCY TEXT: ONCE PER WEEK ON FRIDAY AND MONDAY
     Dates: start: 20240908
  89. HYDROXYCHLOROQUINE [Concomitant]
     Active Substance: HYDROXYCHLOROQUINE
     Indication: Chronic cutaneous lupus erythematosus
     Route: 048
     Dates: start: 20230428, end: 20230816
  90. HYDROXYCHLOROQUINE [Concomitant]
     Active Substance: HYDROXYCHLOROQUINE
     Indication: Systemic lupus erythematosus
  91. LYNPARZA [Concomitant]
     Active Substance: OLAPARIB
     Indication: Ovarian cancer
  92. LYNPARZA [Concomitant]
     Active Substance: OLAPARIB
     Indication: Neoplasm malignant
  93. GRANULOCYTE COLONY-STIMULATING FACTOR NOS [Concomitant]
     Active Substance: GRANULOCYTE COLONY-STIMULATING FACTOR NOS
     Indication: Supportive care
     Dates: start: 20231002, end: 20231020
  94. GRANULOCYTE COLONY-STIMULATING FACTOR NOS [Concomitant]
     Active Substance: GRANULOCYTE COLONY-STIMULATING FACTOR NOS
     Indication: Neutropenia
     Dates: start: 20240813, end: 20240907
  95. GRANULOCYTE COLONY-STIMULATING FACTOR NOS [Concomitant]
     Active Substance: GRANULOCYTE COLONY-STIMULATING FACTOR NOS
     Indication: Blood test abnormal
     Dates: start: 20231128, end: 20240812
  96. GRANULOCYTE COLONY-STIMULATING FACTOR NOS [Concomitant]
     Active Substance: GRANULOCYTE COLONY-STIMULATING FACTOR NOS
     Dates: start: 20231120, end: 20231123
  97. GRANULOCYTE COLONY-STIMULATING FACTOR NOS [Concomitant]
     Active Substance: GRANULOCYTE COLONY-STIMULATING FACTOR NOS
     Dates: start: 20240908, end: 20240908
  98. GRANULOCYTE COLONY-STIMULATING FACTOR NOS [Concomitant]
     Active Substance: GRANULOCYTE COLONY-STIMULATING FACTOR NOS
     Dates: start: 20240910, end: 20240912
  99. GRANULOCYTE COLONY-STIMULATING FACTOR NOS [Concomitant]
     Active Substance: GRANULOCYTE COLONY-STIMULATING FACTOR NOS
     Dates: start: 20240913, end: 20240914
  100. LEVOFLOXACIN [Concomitant]
     Active Substance: LEVOFLOXACIN
     Indication: Product used for unknown indication
     Route: 042
     Dates: start: 20240908, end: 20240914
  101. URAPIDIL [Concomitant]
     Active Substance: URAPIDIL
     Indication: Product used for unknown indication
     Dosage: PERFUSOR 2ML/H
     Route: 042
     Dates: start: 20240913, end: 20240915
  102. CLEVIPREX [Concomitant]
     Active Substance: CLEVIDIPINE
     Indication: Hypertension
     Dosage: 2 ML/HOUR PERFUSOR
     Route: 042
     Dates: start: 20240913, end: 20240915
  103. CLEVIPREX [Concomitant]
     Active Substance: CLEVIDIPINE
     Dosage: PERFUSOR 2ML/H
     Route: 042
     Dates: start: 202409, end: 202409
  104. ZOFRAN [Concomitant]
     Active Substance: ONDANSETRON HYDROCHLORIDE
     Indication: Nausea
     Route: 048
     Dates: start: 20240913, end: 20240915
  105. AMLODIPINE [Concomitant]
     Active Substance: AMLODIPINE BESYLATE
     Indication: Hypertension
     Dosage: BP |}140 UP TO 3X DAILY
     Route: 048
     Dates: start: 20240910, end: 20240913
  106. AMLODIPINE [Concomitant]
     Active Substance: AMLODIPINE BESYLATE
     Dosage: APPLICATION FREQUENCY: 1-0-1
     Route: 048
     Dates: start: 20240914, end: 20240914
  107. ACETAMINOPHEN [Concomitant]
     Active Substance: ACETAMINOPHEN
     Indication: Pyrexia
     Route: 042
     Dates: start: 20240907, end: 20240915
  108. ACETAMINOPHEN [Concomitant]
     Active Substance: ACETAMINOPHEN
     Indication: Pain
  109. Olanib [Concomitant]
     Indication: Product used for unknown indication
  110. Dulcolax [Concomitant]
     Indication: Product used for unknown indication
     Route: 048
     Dates: start: 20240908, end: 20240908

REACTIONS (23)
  - Cardiac failure [Fatal]
  - General physical health deterioration [Unknown]
  - Neutropenia [Unknown]
  - Cerebral haemorrhage [Fatal]
  - Diarrhoea [Recovered/Resolved]
  - Malignant neoplasm progression [Fatal]
  - Acute myeloid leukaemia [Fatal]
  - Infection susceptibility increased [Unknown]
  - Anaemia [Recovered/Resolved]
  - Pyrexia [Unknown]
  - Blood test abnormal [Not Recovered/Not Resolved]
  - Pancytopenia [Recovered/Resolved]
  - Thrombocytopenia [Recovered/Resolved]
  - Petechiae [Recovered/Resolved]
  - Epistaxis [Recovered/Resolved]
  - Gingival bleeding [Recovered/Resolved]
  - Febrile neutropenia [Fatal]
  - Dysphagia [Unknown]
  - Rhinitis [Unknown]
  - Periodontitis [Unknown]
  - Penile haemorrhage [Recovered/Resolved]
  - Cerebral mass effect [Fatal]
  - Hypertensive crisis [Fatal]

NARRATIVE: CASE EVENT DATE: 20230909
